FAERS Safety Report 20649602 (Version 1)
Quarter: 2022Q1

REPORT INFORMATION
  Report Type: Spontaneous
  Country: US (occurrence: None)
  Receive Date: 20220329
  Receipt Date: 20220329
  Transmission Date: 20220423
  Serious: No
  Sender: FDA-Public Use
  Company Number: None

PATIENT
  Sex: Male
  Weight: 87.09 kg

DRUGS (8)
  1. ABIRATERONE [Suspect]
     Active Substance: ABIRATERONE
     Indication: Prostate cancer
     Dosage: FREQUENCY : DAILY;?
     Route: 048
     Dates: end: 202203
  2. BICALUTAMIDE [Concomitant]
     Active Substance: BICALUTAMIDE
  3. COLACE [Concomitant]
     Active Substance: DOCUSATE SODIUM
  4. LUPRON [Concomitant]
     Active Substance: LEUPROLIDE ACETATE
  5. NORCO [Concomitant]
     Active Substance: ACETAMINOPHEN\HYDROCODONE BITARTRATE
  6. NORVASC [Concomitant]
     Active Substance: AMLODIPINE BESYLATE
  7. ERLEADA [Concomitant]
     Active Substance: APALUTAMIDE
  8. MICONAZOLE [Concomitant]
     Active Substance: MICONAZOLE

REACTIONS (1)
  - Disease progression [None]
